FAERS Safety Report 18781261 (Version 1)
Quarter: 2021Q1

REPORT INFORMATION
  Report Type: Spontaneous
  Country: US (occurrence: US)
  Receive Date: 20210124
  Receipt Date: 20210124
  Transmission Date: 20210419
  Serious: No
  Sender: FDA-Public Use
  Company Number: None

PATIENT
  Sex: Female

DRUGS (1)
  1. METHYLPHENIDATE 10MG TABLETS [Suspect]
     Active Substance: METHYLPHENIDATE
     Dosage: QUANTITY:60 TABLET(S);?
     Route: 048

REACTIONS (1)
  - Drug ineffective [None]
